FAERS Safety Report 10089571 (Version 1)
Quarter: 2014Q2

REPORT INFORMATION
  Report Type: Spontaneous
  Country: GB (occurrence: GB)
  Receive Date: 20140421
  Receipt Date: 20140421
  Transmission Date: 20141212
  Serious: Yes (Disabling)
  Sender: FDA-Public Use
  Company Number: GB-PFIZER INC-2014106087

PATIENT
  Age: 62 Year
  Sex: Female

DRUGS (15)
  1. DOXYCYCLINE MONOHYDRATE [Suspect]
     Indication: SINUSITIS
     Dosage: 200 MG TO START
     Dates: start: 20140228
  2. DOXYCYCLINE MONOHYDRATE [Suspect]
     Dosage: 100 MG, DAILY
     Dates: end: 20140307
  3. ATENOLOL [Concomitant]
     Dosage: 50 MG, 1X/DAY
  4. CLONIDINE [Concomitant]
     Indication: MENOPAUSAL SYMPTOMS
     Dosage: 50 MG, 3X/DAY
  5. DILTIAZEM [Concomitant]
     Dosage: 120 MG, 1X/DAY
  6. DOXEPIN [Concomitant]
     Indication: PRURITUS
     Dosage: THREE TIMES DAILY AS REQUIRED
  7. DUROGESIC [Concomitant]
     Indication: BACK PAIN
     Dosage: 25 MCG/H - 2 PATCHES EVERY 72 HOURS
  8. FEXOFENADINE [Concomitant]
     Dosage: 120 MG, 1X/DAY
  9. IBUPROFEN [Concomitant]
     Dosage: 400 MG, THREE TIMES DAILY AS REQUIRED
  10. LOPERAMIDE [Concomitant]
     Dosage: AS REQUIRED
  11. LOSARTAN [Concomitant]
     Indication: HYPERTENSION
     Dosage: 100 MG, DAILY
  12. OMEPRAZOLE [Concomitant]
     Dosage: 20 MG, UNK
  13. PARACETAMOL [Concomitant]
     Dosage: 1 G, FOUR TIMES DAILY AS REQUIRED
  14. PROCHLORPERAZINE [Concomitant]
     Dosage: 3-6 MG THRICE DAILY AS NEEDED
  15. SIMVASTATIN [Concomitant]
     Indication: HYPERCHOLESTEROLAEMIA
     Dosage: 40 MG, UNK

REACTIONS (1)
  - Tongue discolouration [Recovering/Resolving]
